FAERS Safety Report 7469133-X (Version None)
Quarter: 2011Q2

REPORT INFORMATION
  Report Type: 
  Country: None (occurrence: None)
  Receive Date: 20110510
  Receipt Date: 20110426
  Transmission Date: 20111010
  Serious: Yes (Life-Threatening, Hospitalization, Other)
  Sender: FDA-Public Use
  Company Number: FR-ELI_LILLY_AND_COMPANY-FR201011006791

PATIENT
  Age: 81 Year
  Sex: Female
  Weight: 50 kg

DRUGS (16)
  1. KALEORID [Concomitant]
  2. RAMIPRIL [Concomitant]
  3. CYMBALTA [Suspect]
     Indication: ANXIETY
     Dosage: 30 MG, DAILY (1/D)
     Route: 048
     Dates: start: 20090425, end: 20090426
  4. CIPROFLOXACIN [Concomitant]
     Indication: PYELONEPHRITIS
     Dosage: 500 MG, DAILY (1/D)
     Route: 048
     Dates: start: 20090425, end: 20090426
  5. EQUANIL [Concomitant]
  6. KARDEGIC [Concomitant]
  7. LASIX [Concomitant]
  8. CACIT [Concomitant]
  9. INVANZ [Concomitant]
     Indication: URINARY TRACT INFECTION
     Dosage: UNK
     Dates: end: 20090525
  10. BISOPROLOL [Concomitant]
  11. ROCEPHIN [Concomitant]
     Indication: URINARY TRACT INFECTION
  12. DISCOTRINE [Concomitant]
  13. SKENAN [Concomitant]
     Indication: PAIN
  14. AERIUS [Concomitant]
  15. CETORNAN [Concomitant]
  16. PLAVIX [Concomitant]

REACTIONS (12)
  - ABNORMAL BEHAVIOUR [None]
  - DEPRESSION [None]
  - HEPATITIS [None]
  - DRUG INTERACTION [None]
  - FACTOR V DEFICIENCY [None]
  - PROTHROMBIN TIME SHORTENED [None]
  - URINARY RETENTION [None]
  - HYPOTENSION [None]
  - OFF LABEL USE [None]
  - VENTRICULAR TACHYCARDIA [None]
  - HEPATIC FAILURE [None]
  - RHABDOMYOLYSIS [None]
